FAERS Safety Report 16078568 (Version 4)
Quarter: 2020Q1

REPORT INFORMATION
  Report Type: Report from Study
  Country: JP (occurrence: JP)
  Receive Date: 20190315
  Receipt Date: 20200127
  Transmission Date: 20200409
  Serious: Yes (Death, Life-Threatening, Hospitalization)
  Sender: FDA-Public Use
  Company Number: JP-EISAI MEDICAL RESEARCH-EC-2019-053555

PATIENT
  Age: 65 Year
  Sex: Male
  Weight: 58 kg

DRUGS (4)
  1. LOPEMIN [Concomitant]
  2. MALFA [Concomitant]
     Active Substance: ALUMINUM HYDROXIDE\MAGNESIUM HYDROXIDE
  3. LENVIMA [Suspect]
     Active Substance: LENVATINIB
     Indication: HEPATOCELLULAR CARCINOMA
     Route: 048
     Dates: start: 20181110, end: 20190204
  4. ALLOID G [Concomitant]
     Active Substance: SODIUM ALGINATE

REACTIONS (3)
  - Oesophageal varices haemorrhage [Recovering/Resolving]
  - Haematemesis [Recovering/Resolving]
  - Malignant neoplasm progression [Fatal]

NARRATIVE: CASE EVENT DATE: 20190204
